FAERS Safety Report 9422963 (Version 3)
Quarter: 2013Q3

REPORT INFORMATION
  Report Type: Spontaneous
  Country: FR (occurrence: None)
  Receive Date: 20130711
  Receipt Date: 20130731
  Transmission Date: 20140515
  Serious: Yes (Hospitalization)
  Sender: FDA-Public Use
  Company Number: 2013036799

PATIENT
  Age: 26 Year
  Sex: Female

DRUGS (1)
  1. RHOPHYLAC [Suspect]
     Indication: ALLOIMMUNISATION
     Route: 030
     Dates: start: 20130617, end: 20130617

REACTIONS (6)
  - Hypotension [None]
  - Headache [None]
  - Myalgia [None]
  - Paraesthesia [None]
  - Sensory loss [None]
  - Exposure during pregnancy [None]
